FAERS Safety Report 4315352-0 (Version None)
Quarter: 2004Q1

REPORT INFORMATION
  Report Type: 
  Country: None (occurrence: None)
  Receive Date: 20040311
  Receipt Date: 20040302
  Transmission Date: 20041129
  Serious: Yes (Hospitalization, Other)
  Sender: FDA-Public Use
  Company Number: US-BRISTOL-MYERS SQUIBB COMPANY-12523759

PATIENT
  Age: 45 Year
  Sex: Female

DRUGS (5)
  1. REYATAZ [Suspect]
     Indication: HIV TEST POSITIVE
     Route: 048
  2. ACYCLOVIR [Suspect]
     Route: 042
     Dates: end: 20030201
  3. TENOFOVIR [Suspect]
     Dates: end: 20040227
  4. RITONAVIR [Suspect]
  5. ZIDOVUDINE [Suspect]

REACTIONS (4)
  - DRUG HYPERSENSITIVITY [None]
  - RASH PUSTULAR [None]
  - TREMOR [None]
  - VASCULITIS [None]
